FAERS Safety Report 7768811-2 (Version None)
Quarter: 2011Q3

REPORT INFORMATION
  Report Type: 
  Country: None (occurrence: None)
  Receive Date: 20110920
  Receipt Date: 20110906
  Transmission Date: 20111222
  Serious: Yes (Other)
  Sender: FDA-Public Use
  Company Number: 20110626

PATIENT
  Age: 12 Year
  Sex: Male

DRUGS (4)
  1. SODIUM THIOSULFATE [Suspect]
     Indication: AZOTAEMIA
     Dosage: 25 G/L1.73 M2 PER DOSE X92, INTRAVENOUS
  2. SODIUM THIOSULFATE [Suspect]
     Indication: ARTERIAL DISORDER
     Dosage: 25 G/L1.73 M2 PER DOSE X92, INTRAVENOUS
  3. LOW-CALCIUM DIAYSATE [Concomitant]
  4. ANALGESICS [Concomitant]

REACTIONS (4)
  - LONG QT SYNDROME [None]
  - HYPOCALCAEMIA [None]
  - OFF LABEL USE [None]
  - OVERDOSE [None]
